FAERS Safety Report 10566185 (Version 2)
Quarter: 2014Q4

REPORT INFORMATION
  Report Type: Spontaneous
  Country: JP (occurrence: JP)
  Receive Date: 20141105
  Receipt Date: 20141202
  Transmission Date: 20150529
  Serious: Yes (Other)
  Sender: FDA-Public Use
  Company Number: JP-ABBVIE-14P-087-1303143-00

PATIENT
  Sex: Female

DRUGS (1)
  1. VALPROIC ACID. [Suspect]
     Active Substance: VALPROIC ACID
     Indication: PRODUCT USED FOR UNKNOWN INDICATION
     Route: 065

REACTIONS (5)
  - Somnolence [Recovered/Resolved]
  - Status epilepticus [Recovered/Resolved]
  - Hyperammonaemic encephalopathy [Recovered/Resolved]
  - Lethargy [Recovered/Resolved]
  - Depressed level of consciousness [Recovered/Resolved]
